FAERS Safety Report 4364626-6 (Version None)
Quarter: 2004Q2

REPORT INFORMATION
  Report Type: 
  Country: None (occurrence: None)
  Receive Date: 20040521
  Receipt Date: 20040503
  Transmission Date: 20050107
  Serious: Yes (Other)
  Sender: FDA-Public Use
  Company Number: US_0405102824

PATIENT
  Age: 71 Year
  Sex: Female
  Weight: 70 kg

DRUGS (1)
  1. HUMULIN-HUMAN INSULIN (RDNA) : 30% REGULAR, 70% NPH (H [Suspect]
     Dosage: 12 U/1 DAY

REACTIONS (3)
  - BREAST CANCER [None]
  - HYPOAESTHESIA [None]
  - PARAESTHESIA [None]
